FAERS Safety Report 4473668-1 (Version None)
Quarter: 2004Q3

REPORT INFORMATION
  Report Type: 
  Country: None (occurrence: None)
  Receive Date: 20040910
  Receipt Date: 20040819
  Transmission Date: 20050211
  Serious: Yes (Hospitalization, Other)
  Sender: FDA-Public Use
  Company Number: 2004227073US

PATIENT
  Age: 72 Year
  Sex: Male
  Weight: 68 kg

DRUGS (14)
  1. BEXTRA [Suspect]
     Indication: ARTHRITIS
     Dosage: 20 MG, QD, ORAL
     Route: 048
     Dates: start: 20040201, end: 20040716
  2. TOPROL-XL [Concomitant]
  3. ALLOPURINOL [Concomitant]
  4. BUMEX [Concomitant]
  5. ZETIA [Concomitant]
  6. RAPAMUNE [Concomitant]
  7. CELLCEPT [Concomitant]
  8. PREDNISONE [Concomitant]
  9. CARDIZEM [Concomitant]
  10. HYDRALAZINE HCL TAB [Concomitant]
  11. FERREX [Concomitant]
  12. DIGOXIN [Concomitant]
  13. TERAZOSIN HCL [Concomitant]
  14. VIOKASE (PANCRELIPASE) [Concomitant]

REACTIONS (7)
  - COLONIC HAEMORRHAGE [None]
  - DRUG INEFFECTIVE [None]
  - FEELING ABNORMAL [None]
  - HAEMATOCHEZIA [None]
  - RENAL DISORDER [None]
  - SWELLING [None]
  - WEIGHT DECREASED [None]
